FAERS Safety Report 25591175 (Version 1)
Quarter: 2025Q3

REPORT INFORMATION
  Report Type: Report from Study
  Country: US (occurrence: US)
  Receive Date: 20250722
  Receipt Date: 20250722
  Transmission Date: 20251020
  Serious: Yes (Other)
  Sender: ALEXION PHARMACEUTICALS
  Company Number: US-AstraZeneca-CH-00801330A

PATIENT
  Age: 4 Year
  Sex: Female

DRUGS (1)
  1. SOLIRIS [Suspect]
     Active Substance: ECULIZUMAB

REACTIONS (3)
  - Cerebral palsy [Recovering/Resolving]
  - Cerebrovascular accident [Unknown]
  - Foetal exposure during pregnancy [Recovered/Resolved]
